FAERS Safety Report 10277451 (Version 2)
Quarter: 2014Q3

REPORT INFORMATION
  Report Type: Report from Study
  Country: CA (occurrence: CA)
  Receive Date: 20140703
  Receipt Date: 20140814
  Transmission Date: 20150326
  Serious: Yes (Death, Other)
  Sender: FDA-Public Use
  Company Number: CA-GILEAD-2014-0107131

PATIENT
  Age: 62 Year
  Sex: Male

DRUGS (2)
  1. TENOFOVIR DISOPROXIL FUMARATE [Suspect]
     Active Substance: TENOFOVIR DISOPROXIL FUMARATE
     Indication: HEPATITIS B
     Dosage: 300 MG, UNK
     Route: 048
     Dates: start: 201405
  2. TENOFOVIR DISOPROXIL FUMARATE [Suspect]
     Active Substance: TENOFOVIR DISOPROXIL FUMARATE
     Dosage: UNK
     Route: 065

REACTIONS (7)
  - Speech disorder [Not Recovered/Not Resolved]
  - Gastric neoplasm [Not Recovered/Not Resolved]
  - Hepatic cirrhosis [Not Recovered/Not Resolved]
  - Asthenia [Not Recovered/Not Resolved]
  - Dizziness [Not Recovered/Not Resolved]
  - Neoplasm progression [Fatal]
  - Hepatic neoplasm [Not Recovered/Not Resolved]

NARRATIVE: CASE EVENT DATE: 2014
